FAERS Safety Report 15456251 (Version 1)
Quarter: 2018Q4

REPORT INFORMATION
  Report Type: Spontaneous
  Country: US (occurrence: US)
  Receive Date: 20181002
  Receipt Date: 20181002
  Transmission Date: 20190204
  Serious: No
  Sender: FDA-Public Use
  Company Number: US-SA-2018SA272161

PATIENT
  Age: 50 Year
  Sex: Male

DRUGS (3)
  1. TOUJEO [Suspect]
     Active Substance: INSULIN GLARGINE
     Indication: TYPE 2 DIABETES MELLITUS
     Dosage: 75 U, QD
  2. METFORMIN [Concomitant]
     Active Substance: METFORMIN HYDROCHLORIDE
     Dosage: UNKNOWN
  3. TOUJEO [Suspect]
     Active Substance: INSULIN GLARGINE
     Dosage: 37 UNITS IN THE MORNING AND 38 UNITS IN THE EVENING, BID

REACTIONS (4)
  - Dyspnoea [Unknown]
  - Off label use [Unknown]
  - Chest discomfort [Unknown]
  - Respiratory disorder [Unknown]
